FAERS Safety Report 23302167 (Version 12)
Quarter: 2025Q4

REPORT INFORMATION
  Report Type: Spontaneous
  Country: US (occurrence: US)
  Receive Date: 20231215
  Receipt Date: 20251125
  Transmission Date: 20260119
  Serious: Yes (Other)
  Sender: CSL BEHRING
  Company Number: US-BEH-2023166330

PATIENT
  Age: 77 Year
  Sex: Female

DRUGS (20)
  1. BERINERT [Suspect]
     Active Substance: HUMAN C1-ESTERASE INHIBITOR
     Indication: Hereditary angioedema
     Dosage: 2000 IU, EVERY 3 DAYS
     Route: 042
     Dates: start: 201505
  2. BERINERT [Suspect]
     Active Substance: HUMAN C1-ESTERASE INHIBITOR
     Indication: Hereditary angioedema
     Dosage: 2000 IU, EVERY 3 DAYS
     Route: 042
     Dates: start: 201505
  3. BERINERT [Suspect]
     Active Substance: HUMAN C1-ESTERASE INHIBITOR
     Indication: Prophylaxis
     Dosage: 2000 IU, PRN
     Route: 042
     Dates: start: 201505
  4. BERINERT [Suspect]
     Active Substance: HUMAN C1-ESTERASE INHIBITOR
     Indication: Prophylaxis
     Dosage: 2000 IU, PRN
     Route: 042
     Dates: start: 201505
  5. BERINERT [Suspect]
     Active Substance: HUMAN C1-ESTERASE INHIBITOR
     Indication: Hereditary angioedema
     Dosage: 1 DF
     Route: 065
  6. BERINERT [Suspect]
     Active Substance: HUMAN C1-ESTERASE INHIBITOR
     Indication: Hereditary angioedema
     Dosage: 1 DF
     Route: 065
  7. BERINERT [Suspect]
     Active Substance: HUMAN C1-ESTERASE INHIBITOR
     Indication: Hereditary angioedema
     Dosage: 2 DF
     Route: 065
  8. BERINERT [Suspect]
     Active Substance: HUMAN C1-ESTERASE INHIBITOR
     Indication: Hereditary angioedema
     Dosage: 2 DF
     Route: 065
  9. BERINERT [Suspect]
     Active Substance: HUMAN C1-ESTERASE INHIBITOR
     Indication: Hereditary angioedema
     Dosage: 2000 IU (EVERY 3 DAYS)
     Route: 042
     Dates: start: 201507
  10. BERINERT [Suspect]
     Active Substance: HUMAN C1-ESTERASE INHIBITOR
     Indication: Hereditary angioedema
     Dosage: 2000 IU (EVERY 3 DAYS)
     Route: 042
     Dates: start: 201507
  11. BERINERT [Suspect]
     Active Substance: HUMAN C1-ESTERASE INHIBITOR
     Dosage: 40 ML (EVERY 3 DAYS)
     Route: 042
     Dates: start: 202409
  12. BERINERT [Suspect]
     Active Substance: HUMAN C1-ESTERASE INHIBITOR
     Dosage: 40 ML (EVERY 3 DAYS)
     Route: 042
     Dates: start: 202409
  13. BERINERT [Suspect]
     Active Substance: HUMAN C1-ESTERASE INHIBITOR
     Dosage: 2000 IU (EVERY 3 DAYS)
     Route: 042
     Dates: start: 202409
  14. BERINERT [Suspect]
     Active Substance: HUMAN C1-ESTERASE INHIBITOR
     Dosage: 2000 IU (EVERY 3 DAYS)
     Route: 042
     Dates: start: 202409
  15. ICATIBANT ACETATE [Concomitant]
     Active Substance: ICATIBANT ACETATE
     Indication: Hereditary angioedema
  16. FIRAZYR [Concomitant]
     Active Substance: ICATIBANT ACETATE
     Indication: Hereditary angioedema
  17. SODIUM CHLORIDE [Concomitant]
     Active Substance: SODIUM CHLORIDE
     Dosage: 10 ML
  18. PREDNISONE [Concomitant]
     Active Substance: PREDNISONE
     Indication: Upper respiratory tract infection
  19. TAKHZYRO [Concomitant]
     Active Substance: LANADELUMAB-FLYO
  20. EPINEPHRINE [Concomitant]
     Active Substance: EPINEPHRINE

REACTIONS (30)
  - Hereditary angioedema [Unknown]
  - Hereditary angioedema [Not Recovered/Not Resolved]
  - Hereditary angioedema [Recovered/Resolved]
  - Hereditary angioedema [Unknown]
  - Hereditary angioedema [Unknown]
  - Hereditary angioedema [Unknown]
  - Hereditary angioedema [Unknown]
  - Hereditary angioedema [Unknown]
  - Hereditary angioedema [Unknown]
  - Hereditary angioedema [Unknown]
  - Hereditary angioedema [Unknown]
  - Hereditary angioedema [Unknown]
  - Hereditary angioedema [Unknown]
  - Hereditary angioedema [Unknown]
  - Hereditary angioedema [Unknown]
  - Hereditary angioedema [Unknown]
  - Hereditary angioedema [Unknown]
  - Hereditary angioedema [Not Recovered/Not Resolved]
  - Hereditary angioedema [Unknown]
  - Hereditary angioedema [Unknown]
  - Hereditary angioedema [Unknown]
  - Hereditary angioedema [Unknown]
  - Hereditary angioedema [Unknown]
  - Hereditary angioedema [Unknown]
  - Hereditary angioedema [Unknown]
  - Hereditary angioedema [Unknown]
  - Feeling jittery [Unknown]
  - Malaise [Unknown]
  - Asthenia [Unknown]
  - Off label use [Unknown]

NARRATIVE: CASE EVENT DATE: 20240916
